FAERS Safety Report 9494438 (Version 2)
Quarter: 2013Q3

REPORT INFORMATION
  Report Type: Spontaneous
  Country: CH (occurrence: CH)
  Receive Date: 20130903
  Receipt Date: 20130917
  Transmission Date: 20140515
  Serious: Yes (Hospitalization)
  Sender: FDA-Public Use
  Company Number: PHHY2013CH095143

PATIENT
  Age: 80 Year
  Sex: Male

DRUGS (7)
  1. OMEPRAZOL [Suspect]
     Dosage: 20 MG, QD
  2. ASPIRIN [Concomitant]
     Indication: CORONARY ARTERY DISEASE
  3. ASPIRIN [Concomitant]
     Indication: ATRIAL FIBRILLATION
  4. BISOPROLOL [Concomitant]
     Indication: CORONARY ARTERY DISEASE
  5. BISOPROLOL [Concomitant]
     Indication: ATRIAL FIBRILLATION
  6. SIMVASTATIN [Concomitant]
     Indication: CORONARY ARTERY DISEASE
  7. SIMVASTATIN [Concomitant]
     Indication: ATRIAL FIBRILLATION

REACTIONS (19)
  - Dementia [Recovered/Resolved]
  - Electrolyte imbalance [Recovered/Resolved]
  - Hypocalcaemia [Recovered/Resolved]
  - Hypokalaemia [Recovered/Resolved]
  - Hypoparathyroidism secondary [Recovered/Resolved]
  - Respiratory alkalosis [Recovered/Resolved]
  - Convulsion [Recovered/Resolved]
  - Hypomagnesaemia [Recovered/Resolved]
  - Tetany [Recovered/Resolved]
  - Epilepsy [Recovered/Resolved]
  - Muscle rigidity [Recovered/Resolved]
  - Foaming at mouth [Recovered/Resolved]
  - Musculoskeletal stiffness [Recovered/Resolved]
  - Paraesthesia [Recovered/Resolved]
  - Myalgia [Recovered/Resolved]
  - Confusional state [Recovered/Resolved]
  - Tremor [Recovered/Resolved]
  - Apraxia [Recovered/Resolved]
  - Delirium [Recovered/Resolved]
